FAERS Safety Report 7460488-9 (Version None)
Quarter: 2011Q2

REPORT INFORMATION
  Report Type: 
  Country: None (occurrence: None)
  Receive Date: 20110505
  Receipt Date: 20110502
  Transmission Date: 20111010
  Serious: Yes (Hospitalization, Other)
  Sender: FDA-Public Use
  Company Number: US-PFIZER INC-2011023150

PATIENT
  Sex: Male

DRUGS (1)
  1. CHANTIX [Suspect]
     Indication: SMOKING CESSATION THERAPY
     Dosage: UNK
     Dates: start: 20090501, end: 20090701

REACTIONS (7)
  - DEPRESSION [None]
  - DISTURBANCE IN ATTENTION [None]
  - SUICIDAL IDEATION [None]
  - ANXIETY [None]
  - AGGRESSION [None]
  - LOSS OF CONSCIOUSNESS [None]
  - MOOD SWINGS [None]
